FAERS Safety Report 5990757-0 (Version None)
Quarter: 2008Q4

REPORT INFORMATION
  Report Type: 
  Country: None (occurrence: None)
  Receive Date: 20081209
  Receipt Date: 20081124
  Transmission Date: 20090506
  Serious: Yes (Hospitalization)
  Sender: FDA-Public Use
  Company Number: KV200800748

PATIENT
  Age: 78 Year
  Sex: Female

DRUGS (4)
  1. PROPAFENONE HCL [Suspect]
     Indication: ATRIAL FIBRILLATION
     Dosage: 337.5 MG, TID, ORAL
     Route: 048
  2. NEXIUM [Concomitant]
  3. COUMADIN [Concomitant]
  4. POTASSIUM (POTASSIUM) [Concomitant]

REACTIONS (3)
  - ATRIAL FIBRILLATION [None]
  - BLOOD PRESSURE INCREASED [None]
  - PRODUCT QUALITY ISSUE [None]
